FAERS Safety Report 15316730 (Version 1)
Quarter: 2018Q3

REPORT INFORMATION
  Report Type: Spontaneous
  Country: CH (occurrence: CH)
  Receive Date: 20180824
  Receipt Date: 20180824
  Transmission Date: 20181010
  Serious: Yes (Hospitalization, Other)
  Sender: FDA-Public Use
  Company Number: CH-BAYER-2018-123224

PATIENT
  Age: 37 Year
  Sex: Female
  Weight: 67 kg

DRUGS (1)
  1. KYLEENA [Suspect]
     Active Substance: LEVONORGESTREL
     Indication: CONTRACEPTION
     Dosage: 17.5 MCG/24HR, CONT
     Route: 015
     Dates: start: 20171215, end: 20180628

REACTIONS (8)
  - Ectopic pregnancy with contraceptive device [Recovered/Resolved]
  - Pelvic haemorrhage [Recovered/Resolved]
  - Syncope [Recovered/Resolved]
  - Acute abdomen [Recovered/Resolved]
  - Nausea [Recovered/Resolved]
  - Drug ineffective [None]
  - Amenorrhoea [None]
  - Abdominal pain [Recovered/Resolved]

NARRATIVE: CASE EVENT DATE: 201801
